FAERS Safety Report 4576951-4 (Version None)
Quarter: 2005Q1

REPORT INFORMATION
  Report Type: 
  Country: None (occurrence: None)
  Receive Date: 20050208
  Receipt Date: 20050125
  Transmission Date: 20050727
  Serious: Yes (Disabling, Other)
  Sender: FDA-Public Use
  Company Number: 2005019641

PATIENT
  Age: 67 Year
  Sex: Female
  Weight: 63.5036 kg

DRUGS (3)
  1. BEXTRA [Suspect]
     Indication: ARTHRALGIA
     Dosage: 20 MG (20 MG, 1 IN 1 D), ORAL
     Route: 048
     Dates: start: 20030101
  2. ACETYLSALICYLIC ACID 9ACETYLSALICYLIC ACID0 [Concomitant]
  3. METOPROLOL TARTRATE [Concomitant]

REACTIONS (1)
  - CEREBROVASCULAR ACCIDENT [None]
